FAERS Safety Report 7787168-4 (Version None)
Quarter: 2011Q3

REPORT INFORMATION
  Report Type: 
  Country: None (occurrence: None)
  Receive Date: 20110927
  Receipt Date: 20110909
  Transmission Date: 20111222
  Serious: Yes (Other)
  Sender: FDA-Public Use
  Company Number: 2011AP002017

PATIENT
  Age: 48 Year
  Sex: Male

DRUGS (1)
  1. ENALAPRIL MALEATE [Suspect]
     Indication: HYPERTENSION
     Dosage: 1 TAB;QD
     Route: 048
     Dates: start: 20110901, end: 20110903

REACTIONS (3)
  - HYPERSENSITIVITY [None]
  - COUGH [None]
  - DISCOMFORT [None]
